FAERS Safety Report 8119990-9 (Version None)
Quarter: 2012Q1

REPORT INFORMATION
  Report Type: 
  Country: None (occurrence: None)
  Receive Date: 20120207
  Receipt Date: 20120120
  Transmission Date: 20120608
  Serious: Yes (Other)
  Sender: FDA-Public Use
  Company Number: JP-TEVA-2011005436

PATIENT
  Sex: Female

DRUGS (1)
  1. TIZANIDINE HCL [Suspect]
     Route: 048

REACTIONS (2)
  - PROCTITIS [None]
  - RECTAL HAEMORRHAGE [None]
